FAERS Safety Report 6719502-8 (Version None)
Quarter: 2010Q2

REPORT INFORMATION
  Report Type: 
  Country: None (occurrence: None)
  Receive Date: 20100511
  Receipt Date: 20100429
  Transmission Date: 20101027
  Serious: Yes (Other)
  Sender: FDA-Public Use
  Company Number: NO-ROCHE-700616

PATIENT
  Sex: Female
  Weight: 4.1 kg

DRUGS (3)
  1. TAMIFLU [Suspect]
     Indication: INFLUENZA
     Dosage: DOSE AND FREQUENCY: UNSPECIFIED, START DATE REPORTED AS 29 NOVEMBER 2009
     Dates: start: 20091001
  2. PANDEMRIX [Suspect]
     Dosage: FREQUENCY: FIRST DOSE
     Dates: start: 20091026
  3. HUMALOG [Concomitant]
     Dosage: INSULIN PUMP

REACTIONS (2)
  - MACROSOMIA [None]
  - STILLBIRTH [None]
